FAERS Safety Report 5152280-5 (Version None)
Quarter: 2006Q4

REPORT INFORMATION
  Report Type: 
  Country: None (occurrence: None)
  Receive Date: 20061116
  Receipt Date: 20040213
  Transmission Date: 20070319
  Serious: Yes (Hospitalization)
  Sender: FDA-Public Use
  Company Number: AU-MERCK-0402AUS00092

PATIENT
  Age: 66 Year
  Sex: Female

DRUGS (8)
  1. ZOCOR [Suspect]
     Route: 048
     Dates: start: 19920901, end: 19920926
  2. DICLOFENAC SODIUM [Suspect]
     Route: 065
     Dates: end: 19920926
  3. FUROSEMIDE [Concomitant]
     Route: 065
  4. VERAPAMIL HYDROCHLORIDE [Concomitant]
     Route: 065
  5. COLCHICINE [Concomitant]
     Route: 065
  6. ALLOPURINOL SODIUM [Concomitant]
     Route: 065
  7. TRIMETHOPRIM [Concomitant]
     Route: 065
  8. OXAZEPAM [Concomitant]
     Route: 065

REACTIONS (6)
  - ASTHENIA [None]
  - BLOOD CREATINE PHOSPHOKINASE INCREASED [None]
  - CONSTIPATION [None]
  - MYALGIA [None]
  - RENAL PAIN [None]
  - RHABDOMYOLYSIS [None]
